FAERS Safety Report 10636473 (Version 2)
Quarter: 2014Q4

REPORT INFORMATION
  Report Type: Spontaneous
  Country: US (occurrence: US)
  Receive Date: 20141207
  Receipt Date: 20141207
  Transmission Date: 20150529
  Serious: No
  Sender: FDA-Public Use
  Company Number: US-GLAXOSMITHKLINE-A1088314A

PATIENT

DRUGS (3)
  1. BETA AGONIST (UNSPECIFIED) [Interacting]
     Active Substance: UNSPECIFIED INGREDIENT
     Indication: PRODUCT USED FOR UNKNOWN INDICATION
     Dosage: LONG ACTING BETA AGONIST
     Route: 065
  2. BREO ELLIPTA [Suspect]
     Active Substance: FLUTICASONE FUROATE\VILANTEROL TRIFENATATE
     Indication: CHRONIC OBSTRUCTIVE PULMONARY DISEASE
     Dosage: 1 PUFF(S), 1D
     Route: 055
     Dates: start: 201408, end: 20140904
  3. SPIRIVA [Concomitant]
     Active Substance: TIOTROPIUM BROMIDE MONOHYDRATE

REACTIONS (11)
  - Middle insomnia [Unknown]
  - Dyspnoea [Unknown]
  - Labelled drug-drug interaction medication error [Unknown]
  - Drug ineffective [Unknown]
  - Tremor [Unknown]
  - Blood pressure decreased [Unknown]
  - Asthenia [Unknown]
  - Heart rate decreased [Unknown]
  - Adverse event [Unknown]
  - Cough [Unknown]
  - Chills [Unknown]

NARRATIVE: CASE EVENT DATE: 2014
